FAERS Safety Report 9454394 (Version 2)
Quarter: 2013Q3

REPORT INFORMATION
  Report Type: Spontaneous
  Country: DE (occurrence: DE)
  Receive Date: 20130812
  Receipt Date: 20130903
  Transmission Date: 20140515
  Serious: Yes (Death, Other)
  Sender: FDA-Public Use
  Company Number: DE-ELI_LILLY_AND_COMPANY-DE201308000709

PATIENT
  Age: 86 Year
  Sex: Female

DRUGS (5)
  1. FORSTEO [Suspect]
     Indication: OSTEOPOROSIS POSTMENOPAUSAL
     Dosage: 20 UG, QD
     Route: 058
     Dates: start: 201205, end: 201307
  2. NOVALGIN                           /00169801/ [Concomitant]
  3. TARGIN [Concomitant]
     Dosage: UNK, QD
  4. PARACETAMOL [Concomitant]
  5. VITAMIN D                          /00107901/ [Concomitant]

REACTIONS (7)
  - Death [Fatal]
  - Gastrointestinal haemorrhage [Unknown]
  - Procedural intestinal perforation [Unknown]
  - Dizziness [Not Recovered/Not Resolved]
  - Sleep disorder [Not Recovered/Not Resolved]
  - Nausea [Not Recovered/Not Resolved]
  - Inappropriate schedule of drug administration [Not Recovered/Not Resolved]
